FAERS Safety Report 19071473 (Version 1)
Quarter: 2021Q1

REPORT INFORMATION
  Report Type: Spontaneous
  Country: US (occurrence: US)
  Receive Date: 20210330
  Receipt Date: 20210330
  Transmission Date: 20210420
  Serious: No
  Sender: FDA-Public Use
  Company Number: US-GLAXOSMITHKLINE-US2021AMR071504

PATIENT

DRUGS (1)
  1. BUPROPION HYDROCHLORIDE XL [Suspect]
     Active Substance: BUPROPION HYDROCHLORIDE
     Indication: PRODUCT USED FOR UNKNOWN INDICATION
     Dosage: UNK

REACTIONS (9)
  - Swollen tongue [Unknown]
  - Dysphonia [Unknown]
  - Ageusia [Unknown]
  - Sensation of foreign body [Unknown]
  - Dry mouth [Unknown]
  - Tongue erythema [Unknown]
  - Dry eye [Unknown]
  - Asthenia [Unknown]
  - Dry throat [Unknown]
